FAERS Safety Report 10035477 (Version 2)
Quarter: 2014Q2

REPORT INFORMATION
  Report Type: Spontaneous
  Country: US (occurrence: US)
  Receive Date: 20140325
  Receipt Date: 20140424
  Transmission Date: 20141212
  Serious: No
  Sender: FDA-Public Use
  Company Number: US-PFIZER INC-2014083800

PATIENT
  Sex: Male

DRUGS (2)
  1. INLYTA [Suspect]
     Dosage: 5 MG, 2X/DAY
  2. INLYTA [Suspect]
     Dosage: 7 MG, 2X/DAY

REACTIONS (1)
  - Diarrhoea [Recovered/Resolved]
